FAERS Safety Report 15780734 (Version 2)
Quarter: 2019Q1

REPORT INFORMATION
  Report Type: Spontaneous
  Country: CA (occurrence: CA)
  Receive Date: 20190102
  Receipt Date: 20190221
  Transmission Date: 20190417
  Serious: Yes (Hospitalization, Other)
  Sender: FDA-Public Use
  Company Number: CA-ROCHE-2237678

PATIENT
  Sex: Female

DRUGS (6)
  1. XOLAIR [Suspect]
     Active Substance: OMALIZUMAB
     Route: 058
     Dates: start: 20190125
  2. XOLAIR [Suspect]
     Active Substance: OMALIZUMAB
     Route: 065
  3. AERIUS (DESLORATADINE) [Concomitant]
     Active Substance: DESLORATADINE
     Indication: URTICARIA
     Route: 048
     Dates: start: 20181014
  4. BILASTINE [Concomitant]
     Active Substance: BILASTINE
     Indication: URTICARIA
     Route: 048
     Dates: start: 20181114
  5. ZANTAC [Concomitant]
     Active Substance: RANITIDINE HYDROCHLORIDE
     Indication: URTICARIA
     Route: 048
     Dates: start: 20181114
  6. XOLAIR [Suspect]
     Active Substance: OMALIZUMAB
     Indication: CHRONIC SPONTANEOUS URTICARIA
     Route: 058
     Dates: start: 20181123

REACTIONS (7)
  - Urticaria [Recovered/Resolved]
  - Feeding disorder [Unknown]
  - Blood pressure decreased [Unknown]
  - Insomnia [Unknown]
  - Discomfort [Unknown]
  - Pruritus [Unknown]
  - Fear [Unknown]
